FAERS Safety Report 9858051 (Version 2)
Quarter: 2014Q1

REPORT INFORMATION
  Report Type: Report from Study
  Country: US (occurrence: US)
  Receive Date: 20140131
  Receipt Date: 20140306
  Transmission Date: 20141002
  Serious: No
  Sender: FDA-Public Use
  Company Number: PHEH2014US002099

PATIENT
  Sex: Male

DRUGS (9)
  1. TASIGNA [Suspect]
     Indication: NEOPLASM MALIGNANT
     Dosage: 2 DF(300 MG) BID
     Route: 048
     Dates: start: 201309
  2. METFORMIN [Concomitant]
     Dosage: UNK UKN, UNK
  3. ANDROGEL [Concomitant]
     Dosage: UNK UKN, UNK
  4. LIPITOR [Concomitant]
     Dosage: UNK UKN, UNK
  5. ZYRTEC [Concomitant]
     Dosage: UNK UKN, UNK
  6. MULTIVITAMIN [Concomitant]
     Dosage: UNK UKN, UNK
  7. VITAMIN D [Concomitant]
     Dosage: UNK UKN, UNK
  8. OMEPRAZOLE [Concomitant]
     Dosage: UNK UKN, UNK
  9. GLUCOSAMINE + CHONDROITIN WITH MSM [Concomitant]
     Dosage: UNK UKN, UNK

REACTIONS (1)
  - Blood glucose increased [Unknown]
